FAERS Safety Report 6101104-8 (Version None)
Quarter: 2009Q1

REPORT INFORMATION
  Report Type: 
  Country: None (occurrence: None)
  Receive Date: 20090227
  Receipt Date: 20090213
  Transmission Date: 20090719
  Serious: Yes (Hospitalization)
  Sender: FDA-Public Use
  Company Number: KV200900099

PATIENT
  Age: 64 Year
  Sex: Male

DRUGS (2)
  1. PROPAFENONE HCL [Suspect]
     Indication: ATRIAL FIBRILLATION
     Dosage: 300 MG, TID, ORAL
     Route: 048
     Dates: start: 20070109
  2. COUMADIN [Concomitant]

REACTIONS (2)
  - ATRIAL FLUTTER [None]
  - ORTHOSTATIC HYPOTENSION [None]
